FAERS Safety Report 5464866-9 (Version None)
Quarter: 2007Q3

REPORT INFORMATION
  Report Type: 
  Country: None (occurrence: None)
  Receive Date: 20070921
  Receipt Date: 20070910
  Transmission Date: 20080115
  Serious: Yes (Other)
  Sender: FDA-Public Use
  Company Number: US-PFIZER INC-2007076396

PATIENT
  Sex: Male

DRUGS (1)
  1. DILANTIN [Suspect]
     Indication: CONVULSION

REACTIONS (5)
  - COUGH [None]
  - DIZZINESS [None]
  - HEPATIC ENZYME INCREASED [None]
  - NEOPLASM MALIGNANT [None]
  - NERVOUS SYSTEM DISORDER [None]
